FAERS Safety Report 8349307-6 (Version None)
Quarter: 2012Q2

REPORT INFORMATION
  Report Type: 
  Country: None (occurrence: None)
  Receive Date: 20120510
  Receipt Date: 20120504
  Transmission Date: 20120825
  Serious: Yes (Life-Threatening, Hospitalization, Other)
  Sender: FDA-Public Use
  Company Number: US-ASTRAZENECA-2012SE20698

PATIENT
  Age: 46 Year
  Sex: Male
  Weight: 98 kg

DRUGS (4)
  1. ALCOHOL [Suspect]
     Route: 065
  2. BARBITURATES [Suspect]
     Route: 065
  3. SEROQUEL XR [Suspect]
     Indication: BIPOLAR DISORDER
     Route: 048
  4. PAXIL [Concomitant]

REACTIONS (2)
  - OVERDOSE [None]
  - SUICIDE ATTEMPT [None]
